FAERS Safety Report 11417265 (Version 1)
Quarter: 2015Q3

REPORT INFORMATION
  Report Type: Spontaneous
  Country: US (occurrence: US)
  Receive Date: 20150825
  Receipt Date: 20150825
  Transmission Date: 20151125
  Serious: Yes (Other)
  Sender: FDA-Public Use
  Company Number: US-PFIZER INC-2015280368

PATIENT
  Age: 83 Year
  Sex: Male
  Weight: 79 kg

DRUGS (1)
  1. LYRICA [Suspect]
     Active Substance: PREGABALIN
     Indication: CEREBRAL DISORDER
     Dosage: 100 MG, 2X/DAY, ONE IN THE RMONING AND ONE AT NIGHT

REACTIONS (2)
  - Loss of consciousness [Not Recovered/Not Resolved]
  - Skin disorder [Not Recovered/Not Resolved]
